FAERS Safety Report 8843744 (Version 1)
Quarter: 2012Q4

REPORT INFORMATION
  Report Type: 
  Country: NL (occurrence: NL)
  Receive Date: 20121017
  Receipt Date: 20121017
  Transmission Date: 20130627
  Serious: Yes (Other)
  Sender: FDA-Public Use
  Company Number: NL-AMGEN-NLDSP2012064970

PATIENT
  Age: 66 Year
  Sex: Male

DRUGS (2)
  1. ENBREL [Suspect]
     Indication: PSORIATIC ARTHROPATHY
     Dosage: 50 mg, weekly
     Route: 065
     Dates: start: 20111020
  2. ENBREL [Suspect]
     Dosage: 50 mg, weekly
     Route: 065

REACTIONS (2)
  - Ingrowing nail [Recovered/Resolved]
  - Wound infection [Recovered/Resolved]
